FAERS Safety Report 6366391-X (Version None)
Quarter: 2009Q3

REPORT INFORMATION
  Report Type: 
  Country: None (occurrence: None)
  Receive Date: 20090921
  Receipt Date: 20090914
  Transmission Date: 20100115
  Serious: Yes (Hospitalization)
  Sender: FDA-Public Use
  Company Number: AT-ROCHE-615698

PATIENT
  Sex: Male
  Weight: 104 kg

DRUGS (4)
  1. CAPECITABINE [Suspect]
     Indication: COLON CANCER
     Route: 048
     Dates: start: 20081212
  2. CAPECITABINE [Suspect]
     Route: 048
     Dates: start: 20090215, end: 20090227
  3. BEVACIZUMAB [Suspect]
     Indication: COLON CANCER
     Dosage: FORM REPORTED AS INFUSION.
     Route: 042
     Dates: start: 20081211
  4. BEVACIZUMAB [Suspect]
     Route: 042

REACTIONS (3)
  - ABDOMINAL PAIN [None]
  - CEREBROVASCULAR ACCIDENT [None]
  - CHOLECYSTITIS [None]
